FAERS Safety Report 9966504 (Version 2)
Quarter: 2014Q1

REPORT INFORMATION
  Report Type: Report from Study
  Country: US (occurrence: US)
  Receive Date: 20140305
  Receipt Date: 20140305
  Transmission Date: 20141002
  Serious: No
  Sender: FDA-Public Use
  Company Number: US-ABBVIE-13P-163-1095771-00

PATIENT
  Age: 61 Year
  Sex: Female
  Weight: 106.69 kg

DRUGS (4)
  1. HUMIRA [Suspect]
     Indication: PSORIASIS
     Dates: start: 20130328, end: 201305
  2. HUMIRA [Suspect]
     Dates: start: 20130718
  3. LIPITOR [Concomitant]
  4. FUROSEMIDE [Concomitant]
     Indication: FLUID RETENTION
     Dates: start: 201305

REACTIONS (3)
  - Fluid retention [Not Recovered/Not Resolved]
  - Oedema [Recovering/Resolving]
  - Fatigue [Unknown]
